FAERS Safety Report 16127345 (Version 1)
Quarter: 2019Q1

REPORT INFORMATION
  Report Type: Spontaneous
  Country: DE (occurrence: DE)
  Receive Date: 20190328
  Receipt Date: 20190328
  Transmission Date: 20190418
  Serious: Yes (Other)
  Sender: FDA-Public Use
  Company Number: DE-TEVA-2019-DE-1029241

PATIENT
  Sex: Male

DRUGS (1)
  1. COPAXONE [Suspect]
     Active Substance: GLATIRAMER ACETATE
     Dates: start: 201608

REACTIONS (16)
  - Tonsillitis [Unknown]
  - Oropharyngeal pain [Unknown]
  - Infection [Unknown]
  - Pharyngitis streptococcal [Unknown]
  - Fear of disease [Unknown]
  - Fungal pharyngitis [Unknown]
  - Depression [Unknown]
  - Tremor [Not Recovered/Not Resolved]
  - Pain in extremity [Not Recovered/Not Resolved]
  - Multiple sclerosis relapse [Not Recovered/Not Resolved]
  - Sinusitis [Unknown]
  - Throat clearing [Unknown]
  - Dizziness [Recovered/Resolved]
  - Otitis media [Recovered/Resolved]
  - Apathy [Unknown]
  - Limb discomfort [Not Recovered/Not Resolved]

NARRATIVE: CASE EVENT DATE: 2018
